FAERS Safety Report 7303900-8 (Version None)
Quarter: 2011Q1

REPORT INFORMATION
  Report Type: 
  Country: None (occurrence: None)
  Receive Date: 20110221
  Receipt Date: 20110214
  Transmission Date: 20110831
  Serious: Yes (Other)
  Sender: FDA-Public Use
  Company Number: B0701028A

PATIENT
  Age: 53 Year
  Sex: Female

DRUGS (1)
  1. FLUTIDE [Suspect]
     Route: 065

REACTIONS (1)
  - INCREASED UPPER AIRWAY SECRETION [None]
